APPROVED DRUG PRODUCT: NAPROXEN SODIUM
Active Ingredient: NAPROXEN SODIUM
Strength: EQ 500MG BASE
Dosage Form/Route: TABLET;ORAL
Application: A200629 | Product #002 | TE Code: AB
Applicant: AUROBINDO PHARMA LTD
Approved: Oct 31, 2011 | RLD: No | RS: No | Type: RX